FAERS Safety Report 5814653-4 (Version None)
Quarter: 2008Q3

REPORT INFORMATION
  Report Type: 
  Country: None (occurrence: None)
  Receive Date: 20080718
  Receipt Date: 20071114
  Transmission Date: 20090109
  Serious: No
  Sender: FDA-Public Use
  Company Number: US-KINGPHARMUSA00001-K200701491

PATIENT

DRUGS (4)
  1. LEVOXYL [Suspect]
     Dosage: 112 MCG, QD
     Dates: end: 20071001
  2. LEVOXYL [Suspect]
     Dosage: 125 MCG, UNK
     Dates: start: 20071001, end: 20071112
  3. METFORMIN HCL [Concomitant]
     Indication: DIABETES MELLITUS
     Dosage: 500 MG, TID
     Dates: start: 20070401
  4. CELEXA [Concomitant]
     Dosage: 20 MG, QD
     Dates: start: 20070401, end: 20070401

REACTIONS (2)
  - RASH ERYTHEMATOUS [None]
  - RASH PRURITIC [None]
